FAERS Safety Report 9153389 (Version 2)
Quarter: 2013Q1

REPORT INFORMATION
  Report Type: Spontaneous
  Country: CN (occurrence: CN)
  Receive Date: 20130311
  Receipt Date: 20130322
  Transmission Date: 20140127
  Serious: Yes (Other)
  Sender: FDA-Public Use
  Company Number: CN-JNJFOC-20130300867

PATIENT
  Age: 8 Year
  Sex: Female

DRUGS (2)
  1. MOTRIN [Suspect]
     Route: 048
  2. MOTRIN [Suspect]
     Indication: NASOPHARYNGITIS
     Dosage: 10ML, 3 TIMES A DAY
     Route: 048
     Dates: start: 20021118, end: 20021122

REACTIONS (2)
  - Gastrointestinal haemorrhage [Recovered/Resolved]
  - Epigastric discomfort [None]
